FAERS Safety Report 7174857-8 (Version None)
Quarter: 2010Q4

REPORT INFORMATION
  Report Type: 
  Country: None (occurrence: None)
  Receive Date: 20101219
  Receipt Date: 20100607
  Transmission Date: 20110411
  Serious: Yes (Hospitalization)
  Sender: FDA-Public Use
  Company Number: US-AMGEN-QUU393301

PATIENT

DRUGS (1)
  1. ENBREL [Suspect]
     Indication: RHEUMATOID ARTHRITIS
     Dosage: 50 MG, QWK
     Route: 058

REACTIONS (7)
  - ARTHRALGIA [None]
  - CLOSTRIDIAL INFECTION [None]
  - FATIGUE [None]
  - GASTRITIS [None]
  - JOINT SWELLING [None]
  - MALAISE [None]
  - URINARY TRACT INFECTION [None]
